FAERS Safety Report 7324477-7 (Version None)
Quarter: 2011Q1

REPORT INFORMATION
  Report Type: 
  Country: None (occurrence: None)
  Receive Date: 20110218
  Receipt Date: 20110208
  Transmission Date: 20110831
  Serious: Yes (Death)
  Sender: FDA-Public Use
  Company Number: ZYD-11-AE-015

PATIENT
  Sex: Female

DRUGS (1)
  1. ANASTROZOLE [Suspect]
     Indication: BREAST CANCER
     Dates: start: 20100701

REACTIONS (3)
  - ROAD TRAFFIC ACCIDENT [None]
  - ALTERED STATE OF CONSCIOUSNESS [None]
  - PRODUCT SUBSTITUTION ISSUE [None]
